FAERS Safety Report 9343167 (Version 1)
Quarter: 2013Q2

REPORT INFORMATION
  Report Type: Spontaneous
  Country: US (occurrence: US)
  Receive Date: 20130611
  Receipt Date: 20130611
  Transmission Date: 20140414
  Serious: Yes (Other)
  Sender: FDA-Public Use
  Company Number: US-WATSON-2013-10401

PATIENT
  Age: 63 Year
  Sex: Female

DRUGS (4)
  1. KADIAN (WATSON LABORATORIES) [Suspect]
     Indication: ARTHRITIS
     Dosage: 1-2 TABLETS DAILY
     Route: 065
  2. HUMIRA [Suspect]
     Indication: RHEUMATOID ARTHRITIS
     Dosage: 40 MG, SOLUTION FOR INJECTION
     Route: 065
  3. BENICAR [Concomitant]
     Indication: BLOOD PRESSURE
     Dosage: 40/25 MG DAILY
     Route: 065
  4. ALLEGRA [Concomitant]
     Indication: HYPERSENSITIVITY
     Dosage: 1-2 TABLETS DAILY
     Route: 065

REACTIONS (5)
  - Rheumatoid arthritis [Not Recovered/Not Resolved]
  - Skin exfoliation [Not Recovered/Not Resolved]
  - Dry skin [Not Recovered/Not Resolved]
  - Erythema [Not Recovered/Not Resolved]
  - Pruritus [Not Recovered/Not Resolved]
